FAERS Safety Report 9236095 (Version 1)
Quarter: 2013Q2

REPORT INFORMATION
  Report Type: Spontaneous
  Country: US (occurrence: None)
  Receive Date: 20130416
  Receipt Date: 20130416
  Transmission Date: 20140414
  Serious: Yes (Hospitalization)
  Sender: FDA-Public Use
  Company Number: None

PATIENT
  Age: 39 Year
  Sex: Female

DRUGS (2)
  1. ADVIL [Suspect]
     Indication: MUSCLE SPASMS
     Route: 048
  2. ADVIL [Suspect]
     Indication: POST PROCEDURAL COMPLICATION
     Route: 048

REACTIONS (1)
  - Upper gastrointestinal haemorrhage [None]
